FAERS Safety Report 24791861 (Version 1)
Quarter: 2024Q4

REPORT INFORMATION
  Report Type: Spontaneous
  Country: US (occurrence: US)
  Receive Date: 20241231
  Receipt Date: 20241231
  Transmission Date: 20250115
  Serious: Yes (Other)
  Sender: CIPLA
  Company Number: US-CIPLA LTD.-2024US15465

PATIENT

DRUGS (1)
  1. WARFARIN [Suspect]
     Active Substance: WARFARIN
     Indication: Anticoagulant therapy
     Dosage: UNK
     Route: 065

REACTIONS (3)
  - Haemoglobin decreased [Unknown]
  - Lower gastrointestinal haemorrhage [Unknown]
  - International normalised ratio fluctuation [Unknown]
